FAERS Safety Report 6397890-2 (Version None)
Quarter: 2009Q4

REPORT INFORMATION
  Report Type: 
  Country: None (occurrence: None)
  Receive Date: 20091013
  Receipt Date: 20090928
  Transmission Date: 20100525
  Serious: Yes (Other)
  Sender: FDA-Public Use
  Company Number: DE-BIOGENIDEC-2009BI032615

PATIENT
  Sex: Female

DRUGS (2)
  1. AVONEX [Suspect]
     Indication: DRUG EXPOSURE DURING PREGNANCY
     Dosage: AVONEX WAS CONTINUED DURING ENTIRE PREGNANCY
     Route: 064
     Dates: start: 20081001, end: 20090527
  2. AVONEX [Suspect]
     Dosage: AVONEX WAS CONTINUED DURING LACTATION.
     Route: 063
     Dates: start: 20090527

REACTIONS (1)
  - FOETAL GROWTH RETARDATION [None]
